FAERS Safety Report 7819967-4 (Version None)
Quarter: 2011Q4

REPORT INFORMATION
  Report Type: 
  Country: None (occurrence: None)
  Receive Date: 20111018
  Receipt Date: 20110613
  Transmission Date: 20120403
  Serious: No
  Sender: FDA-Public Use
  Company Number: US-ASTRAZENECA-2011SE36301

PATIENT
  Age: 51 Year
  Sex: Female

DRUGS (2)
  1. RHINOCORT [Suspect]
     Route: 045
  2. SYMBICORT [Suspect]
     Dosage: 160/4.5MCG DAILY
     Route: 055

REACTIONS (4)
  - HYPERSENSITIVITY [None]
  - RASH MACULAR [None]
  - SKIN SENSITISATION [None]
  - SEASONAL ALLERGY [None]
